FAERS Safety Report 9061602 (Version 1)
Quarter: 2013Q1

REPORT INFORMATION
  Report Type: Spontaneous
  Country: US (occurrence: None)
  Receive Date: 20130208
  Receipt Date: 20130208
  Transmission Date: 20140127
  Serious: Yes (Other)
  Sender: FDA-Public Use
  Company Number: None

PATIENT
  Age: 26 Year
  Sex: Male
  Weight: 81.19 kg

DRUGS (1)
  1. LISTERINE TOTAL CARE ZERO [Suspect]
     Dates: start: 20130128, end: 20130205

REACTIONS (9)
  - Pain in jaw [None]
  - Insomnia [None]
  - Lymphadenopathy [None]
  - Toothache [None]
  - Hypoaesthesia oral [None]
  - Glossodynia [None]
  - Dysgeusia [None]
  - Gingival blister [None]
  - Oral mucosal exfoliation [None]
